FAERS Safety Report 8301653 (Version 5)
Quarter: 2013Q4

REPORT INFORMATION
  Report Type: Spontaneous
  Country: US (occurrence: None)
  Receive Date: 20111129
  Receipt Date: 20131226
  Transmission Date: 20140711
  Serious: Yes (Other)
  Sender: FDA-Public Use
  Company Number: PHHY2011US38700

PATIENT
  Age: 31 Year
  Sex: Female

DRUGS (16)
  1. AFINITOR [Suspect]
     Indication: TUBEROUS SCLEROSIS
     Route: 048
     Dates: start: 20101227
  2. AFINITOR [Suspect]
     Indication: BRAIN NEOPLASM BENIGN
     Route: 048
     Dates: start: 20101227
  3. TOPAMAX [Concomitant]
  4. LAMICTAL [Concomitant]
  5. KLONOPIN (CLONAZEPAM) (TABLETS) [Concomitant]
  6. DOXEPIN HYDROCHLORIDE [Concomitant]
  7. PROGESTERONE [Concomitant]
  8. MULTIVITAMINS (ASCORBIC ACID, ERGOCALCIFEROL, FOLIC ACID, NICOTINAMIDE, PANTHENOL, RETINOL, RIBOFLAVIN, THIAMINE HYDROCHLORIDE) [Concomitant]
  9. VITAMIN B12 [Concomitant]
  10. VITAMN D (ERGOCALCIFEROL) [Concomitant]
  11. CALCIUM CARBONATE [Concomitant]
  12. POTASSIUM CHLORIDE [Concomitant]
  13. ZINC (ZINC) [Concomitant]
  14. MAGNESIUM (MAGNESIUM) [Concomitant]
  15. BANZEL (RUFINAMIDE) [Concomitant]
  16. GINGER ALE (ZINGIBER OFFICINALE RHIZOME) [Concomitant]

REACTIONS (15)
  - Convulsion [None]
  - Blood creatinine increased [None]
  - Feeling cold [None]
  - Abdominal discomfort [None]
  - Electrolyte depletion [None]
  - Restless legs syndrome [None]
  - Drug level below therapeutic [None]
  - Toxicity to various agents [None]
  - Drug intolerance [None]
  - Muscle spasms [None]
  - Constipation [None]
  - Blood cholesterol increased [None]
  - Diarrhoea [None]
  - Nausea [None]
  - Pyrexia [None]
